FAERS Safety Report 5218605-7 (Version None)
Quarter: 2007Q1

REPORT INFORMATION
  Report Type: 
  Country: None (occurrence: None)
  Receive Date: 20061130
  Receipt Date: 20060313
  Transmission Date: 20070707
  Serious: Yes (Hospitalization)
  Sender: FDA-Public Use
  Company Number: US200606002832

PATIENT
  Sex: Male
  Weight: 98.9 kg

DRUGS (5)
  1. ZYPREXA [Suspect]
  2. DIVALPROEX SODIUM [Concomitant]
  3. FLUOXETINE HCL [Concomitant]
  4. SYMBYAX [Concomitant]
  5. RISPERIDONE [Concomitant]

REACTIONS (9)
  - ACETONAEMIA [None]
  - DIABETES MELLITUS [None]
  - GLYCOSURIA [None]
  - HYPERGLYCAEMIA [None]
  - HYPERTENSION [None]
  - HYPOGLYCAEMIA [None]
  - KETONURIA [None]
  - POLYURIA [None]
  - VISION BLURRED [None]
